FAERS Safety Report 23146552 (Version 1)
Quarter: 2023Q4

REPORT INFORMATION
  Report Type: Spontaneous
  Country: AU (occurrence: AU)
  Receive Date: 20231105
  Receipt Date: 20231105
  Transmission Date: 20240110
  Serious: Yes (Other)
  Sender: FDA-Public Use
  Company Number: AU-drreddys-SPO/AUS/23/0181037

PATIENT
  Age: 62 Year
  Sex: Male

DRUGS (10)
  1. LEVETIRACETAM [Suspect]
     Active Substance: LEVETIRACETAM
     Indication: Product used for unknown indication
  2. CYCLOPHOSPHAMIDE [Suspect]
     Active Substance: CYCLOPHOSPHAMIDE
     Indication: Product used for unknown indication
  3. CARBOPLATIN [Suspect]
     Active Substance: CARBOPLATIN
     Indication: Product used for unknown indication
  4. DOXORUBICIN HYDROCHLORIDE [Suspect]
     Active Substance: DOXORUBICIN HYDROCHLORIDE
     Indication: Product used for unknown indication
  5. ETOPOSIDE [Suspect]
     Active Substance: ETOPOSIDE
     Indication: Product used for unknown indication
  6. IFOSFAMIDE [Suspect]
     Active Substance: IFOSFAMIDE
     Indication: Product used for unknown indication
  7. MIDAZOLAM [Suspect]
     Active Substance: MIDAZOLAM
     Indication: Product used for unknown indication
  8. PREDNISONE [Suspect]
     Active Substance: PREDNISONE
     Indication: Product used for unknown indication
  9. RITUXIMAB [Suspect]
     Active Substance: RITUXIMAB
     Indication: Product used for unknown indication
  10. VINCRISTINE SULFATE [Suspect]
     Active Substance: VINCRISTINE SULFATE
     Indication: Product used for unknown indication

REACTIONS (21)
  - Bacteraemia [Unknown]
  - Brain oedema [Unknown]
  - Quadriplegia [Unknown]
  - Cardiac arrest [Unknown]
  - Cytokine release syndrome [Unknown]
  - Deep vein thrombosis [Unknown]
  - Diffuse large B-cell lymphoma refractory [Unknown]
  - Gastrointestinal haemorrhage [Unknown]
  - Immune effector cell-associated neurotoxicity syndrome [Unknown]
  - Loss of consciousness [Unknown]
  - Multiple organ dysfunction syndrome [Unknown]
  - Papilloedema [Unknown]
  - Pneumonia [Unknown]
  - Sepsis [Unknown]
  - Seizure [Unknown]
  - Pancytopenia [Unknown]
  - Tachycardia [Unknown]
  - Disease progression [Unknown]
  - Hypotension [Unknown]
  - Pyrexia [Unknown]
  - Chest pain [Unknown]
